FAERS Safety Report 6722757-7 (Version None)
Quarter: 2010Q2

REPORT INFORMATION
  Report Type: 
  Country: None (occurrence: None)
  Receive Date: 20100511
  Receipt Date: 20100427
  Transmission Date: 20101027
  Serious: Yes (Disabling)
  Sender: FDA-Public Use
  Company Number: 2010-1465

PATIENT
  Age: 72 Year
  Sex: Male

DRUGS (11)
  1. DYSPORT [Suspect]
     Indication: MUSCLE SPASTICITY
     Dosage: 900 UNITS, (900 UNITS, SINGLE CYCLE),INTRAMUSCULAR
     Route: 030
     Dates: start: 20090821, end: 20090821
  2. DYSPORT [Suspect]
     Indication: SYRINGOMYELIA
     Dosage: 900 UNITS, (900 UNITS, SINGLE CYCLE),INTRAMUSCULAR
     Route: 030
     Dates: start: 20090821, end: 20090821
  3. AMLODIPINE [Concomitant]
  4. AMITRIPTYLINE HYDROCHLORIDE [Concomitant]
  5. BACLOFEN [Concomitant]
  6. DIAZEPAM [Concomitant]
  7. OXAZEPAM [Concomitant]
  8. ASPIRIN [Concomitant]
  9. COLOXYL (DOCUSATE SODIUM) [Concomitant]
  10. SENNOKOT (SENNA ALEXANDRINA) [Concomitant]
  11. LACTULOSE [Concomitant]

REACTIONS (2)
  - ASTHENIA [None]
  - HYPOTONIA [None]
